FAERS Safety Report 18570086 (Version 1)
Quarter: 2020Q4

REPORT INFORMATION
  Report Type: Report from Study
  Country: US (occurrence: US)
  Receive Date: 20201202
  Receipt Date: 20201202
  Transmission Date: 20210114
  Serious: Yes (Other)
  Sender: FDA-Public Use
  Company Number: US-PFIZER INC-2020468738

PATIENT
  Age: 9 Year
  Sex: Female
  Weight: 42.3 kg

DRUGS (4)
  1. TEMSIROLIMUS. [Suspect]
     Active Substance: TEMSIROLIMUS
     Indication: ALVEOLAR RHABDOMYOSARCOMA
     Dosage: 15 MG/M2, CYCLIC, OVER 30-60 MINUTES ON DAYS 1, 8, AND 15
     Route: 042
     Dates: start: 20180330, end: 20180406
  2. VINCRISTINE SULFATE. [Suspect]
     Active Substance: VINCRISTINE SULFATE
     Indication: ALVEOLAR RHABDOMYOSARCOMA
     Dosage: 1.5 MG/M2, IV OVER 1 MINUTE OR INFUSION VIA MINIBAG ON DAYS 1, 8, AND 15
     Route: 042
     Dates: start: 20180330
  3. CYCLOPHOSPHAMIDE. [Suspect]
     Active Substance: CYCLOPHOSPHAMIDE
     Indication: ALVEOLAR RHABDOMYOSARCOMA
     Dosage: 1200 MG/M2 IV OVER 60 MINUTES ON DAY 1 OF CYCLE 1
     Dates: start: 20180330, end: 20180330
  4. DACTINOMYCIN [Suspect]
     Active Substance: DACTINOMYCIN
     Indication: ALVEOLAR RHABDOMYOSARCOMA
     Dosage: 0.05 MG/KG IV OVER 1-5 MINUTES ON DAY 1 OF CYCLE 1
     Route: 042
     Dates: start: 20180330, end: 20180330

REACTIONS (1)
  - Wound dehiscence [Recovered/Resolved]

NARRATIVE: CASE EVENT DATE: 20180413
